FAERS Safety Report 5534749-4 (Version None)
Quarter: 2007Q4

REPORT INFORMATION
  Report Type: 
  Country: None (occurrence: None)
  Receive Date: 20071120
  Receipt Date: 20070830
  Transmission Date: 20080405
  Serious: No
  Sender: FDA-Public Use
  Company Number: WAES 0708USA05688

PATIENT
  Age: 70 Year
  Sex: Female
  Weight: 83.9154 kg

DRUGS (7)
  1. JANUVIA [Suspect]
     Indication: TYPE 2 DIABETES MELLITUS
     Dosage: 100 MG/PO ; 100 MG/PO
     Route: 048
     Dates: end: 20070830
  2. JANUVIA [Suspect]
     Indication: TYPE 2 DIABETES MELLITUS
     Dosage: 100 MG/PO ; 100 MG/PO
     Route: 048
     Dates: start: 20070412
  3. ADVICOR [Concomitant]
  4. BENICAR [Concomitant]
  5. COREG [Concomitant]
  6. OS-CAL D [Concomitant]
  7. ZYRTEC [Concomitant]

REACTIONS (2)
  - OEDEMA PERIPHERAL [None]
  - WEIGHT INCREASED [None]
